FAERS Safety Report 8538845-9 (Version None)
Quarter: 2012Q3

REPORT INFORMATION
  Report Type: 
  Country: None (occurrence: None)
  Receive Date: 20120726
  Receipt Date: 20120718
  Transmission Date: 20120928
  Serious: Yes (Death)
  Sender: FDA-Public Use
  Company Number: US-SANOFI-AVENTIS-2012SA051368

PATIENT
  Age: 62 Year
  Sex: Female

DRUGS (2)
  1. LANTUS [Suspect]
     Dosage: DOSE:80 UNIT(S)
     Route: 058
     Dates: end: 20120401
  2. OPTICLICK [Suspect]
     Dates: end: 20120401

REACTIONS (3)
  - CEREBROVASCULAR ACCIDENT [None]
  - DIABETIC COMPLICATION [None]
  - LUNG NEOPLASM MALIGNANT [None]
